FAERS Safety Report 10376260 (Version 1)
Quarter: 2014Q3

REPORT INFORMATION
  Report Type: Report from Study
  Country: US (occurrence: US)
  Receive Date: 20140811
  Receipt Date: 20140811
  Transmission Date: 20150326
  Serious: Yes (Death)
  Sender: FDA-Public Use
  Company Number: US-BRISTOL-MYERS SQUIBB COMPANY-21271127

PATIENT

DRUGS (1)
  1. YERVOY [Suspect]
     Active Substance: IPILIMUMAB
     Dosage: INJECTION

REACTIONS (1)
  - Death [Fatal]
